FAERS Safety Report 5021624-7 (Version None)
Quarter: 2006Q2

REPORT INFORMATION
  Report Type: 
  Country: None (occurrence: None)
  Receive Date: 20060605
  Receipt Date: 20051210
  Transmission Date: 20061013
  Serious: Yes (Other)
  Sender: FDA-Public Use
  Company Number: CHPA2005US08842

PATIENT
  Sex: Male

DRUGS (1)
  1. TRIAMINIC LIQUID (NCH) SYRUP [Suspect]

REACTIONS (1)
  - CONVULSION [None]
